FAERS Safety Report 5179708-9 (Version None)
Quarter: 2006Q4

REPORT INFORMATION
  Report Type: 
  Country: None (occurrence: None)
  Receive Date: 20061211
  Receipt Date: 20061129
  Transmission Date: 20070319
  Serious: Yes (Hospitalization, Other)
  Sender: FDA-Public Use
  Company Number: 2006147350

PATIENT
  Age: 73 Year
  Sex: Male
  Weight: 77.1115 kg

DRUGS (11)
  1. CHANTIX [Suspect]
     Indication: SMOKING CESSATION THERAPY
     Dosage: 2 MG (1 MG, 2 IN 1 D)
     Dates: start: 20061101, end: 20061126
  2. OMEPRAZOLE [Concomitant]
  3. ASPIRIN [Concomitant]
  4. TOPROL-XL [Concomitant]
  5. OMEPRAZOLE [Concomitant]
  6. LIPITOR [Concomitant]
  7. CELEBREX [Concomitant]
  8. AVODART [Concomitant]
  9. PRILOSEC [Concomitant]
  10. NIACIN [Concomitant]
  11. BENAZEPRIL HYDROCHLORIDE [Concomitant]

REACTIONS (3)
  - ABNORMAL DREAMS [None]
  - INSOMNIA [None]
  - SWOLLEN TONGUE [None]
